FAERS Safety Report 6382184-1 (Version None)
Quarter: 2009Q3

REPORT INFORMATION
  Report Type: 
  Country: None (occurrence: None)
  Receive Date: 20090930
  Receipt Date: 20090919
  Transmission Date: 20100115
  Serious: Yes (Death)
  Sender: FDA-Public Use
  Company Number: AU-PFIZER INC-2009250903

PATIENT
  Age: 33 Year

DRUGS (1)
  1. CHAMPIX [Suspect]
     Dosage: 0.5 MG, UNK

REACTIONS (1)
  - MYOCARDIAL INFARCTION [None]
